FAERS Safety Report 17768443 (Version 3)
Quarter: 2020Q3

REPORT INFORMATION
  Report Type: Report from Study
  Country: None (occurrence: US)
  Receive Date: 20200511
  Receipt Date: 20200813
  Transmission Date: 20201102
  Serious: Yes (Other)
  Sender: FDA-Public Use
  Company Number: US-ABBVIE-20K-163-3221286-00

PATIENT
  Sex: Female
  Weight: 72.64 kg

DRUGS (3)
  1. HUMIRA [Suspect]
     Active Substance: ADALIMUMAB
     Route: 058
     Dates: start: 2019
  2. HUMIRA [Suspect]
     Active Substance: ADALIMUMAB
     Indication: RHEUMATOID ARTHRITIS
     Route: 058
     Dates: start: 2017, end: 2019
  3. HUMIRA [Suspect]
     Active Substance: ADALIMUMAB
     Route: 058

REACTIONS (22)
  - Bone sarcoma [Not Recovered/Not Resolved]
  - Malabsorption [Recovered/Resolved]
  - Calcification of muscle [Unknown]
  - Pain [Recovered/Resolved]
  - Limb mass [Recovered/Resolved]
  - Paraesthesia [Not Recovered/Not Resolved]
  - Mass [Not Recovered/Not Resolved]
  - Osteoporosis [Recovering/Resolving]
  - Oedema [Not Recovered/Not Resolved]
  - Community acquired infection [Not Recovered/Not Resolved]
  - Limb mass [Not Recovered/Not Resolved]
  - Rib fracture [Recovered/Resolved]
  - Contusion [Recovered/Resolved]
  - Fall [Recovered/Resolved]
  - Bone density decreased [Recovering/Resolving]
  - Pain [Recovered/Resolved]
  - Upper limb fracture [Recovered/Resolved]
  - Oedema peripheral [Recovered/Resolved]
  - Dental caries [Recovering/Resolving]
  - Fatigue [Unknown]
  - Malnutrition [Recovering/Resolving]
  - Migraine [Recovered/Resolved]

NARRATIVE: CASE EVENT DATE: 2019
